FAERS Safety Report 8540331-7 (Version None)
Quarter: 2012Q3

REPORT INFORMATION
  Report Type: 
  Country: None (occurrence: None)
  Receive Date: 20120726
  Receipt Date: 20120713
  Transmission Date: 20120928
  Serious: Yes (Other)
  Sender: FDA-Public Use
  Company Number: BR-ROCHE-1091481

PATIENT
  Sex: Female

DRUGS (6)
  1. XOLAIR [Suspect]
     Dosage: ROUTE, DOSE, FORM AND FREQUENCY: NOT REPORTED
  2. BUDESONIDE [Suspect]
     Indication: ASTHMA
     Dosage: 3 INHALATIONS DAILY
  3. POLARAMINE [Concomitant]
     Dates: start: 20120101
  4. XOLAIR [Suspect]
     Indication: ASTHMA
     Dosage: 2 AMPOULES EVERY 15 DAYS
     Route: 058
     Dates: start: 20110901, end: 20120301
  5. INFLUENZA VIRUS VACCINE, TRIVALENT [Suspect]
     Indication: IMMUNISATION
  6. BUDESONIDE [Suspect]
     Indication: ASTHMA
     Dosage: 3 INHALATIONS (12/400 MCG ) DAILY

REACTIONS (8)
  - DYSPNOEA [None]
  - DIZZINESS [None]
  - ASTHENIA [None]
  - ARTHRALGIA [None]
  - IMMUNODEFICIENCY [None]
  - GAIT DISTURBANCE [None]
  - INFLUENZA [None]
  - MALAISE [None]
